FAERS Safety Report 5254150-0 (Version None)
Quarter: 2007Q1

REPORT INFORMATION
  Report Type: 
  Country: None (occurrence: None)
  Receive Date: 20070302
  Receipt Date: 20070220
  Transmission Date: 20070707
  Serious: Yes (Hospitalization)
  Sender: FDA-Public Use
  Company Number: 2007UW03367

PATIENT
  Age: 10 Year
  Sex: Female

DRUGS (2)
  1. SEROQUEL [Suspect]
     Indication: BIPOLAR I DISORDER
     Route: 048
  2. RISPERDAL [Concomitant]
     Indication: BIPOLAR I DISORDER

REACTIONS (2)
  - TIC [None]
  - VISION BLURRED [None]
